FAERS Safety Report 7327195-4 (Version None)
Quarter: 2011Q1

REPORT INFORMATION
  Report Type: 
  Country: None (occurrence: None)
  Receive Date: 20110302
  Receipt Date: 20110221
  Transmission Date: 20110831
  Serious: Yes (Hospitalization)
  Sender: FDA-Public Use
  Company Number: ES-ASTRAZENECA-2011SE09734

PATIENT
  Age: 74 Year
  Sex: Male

DRUGS (5)
  1. AZILECT [Concomitant]
     Route: 048
     Dates: end: 20091127
  2. SEROQUEL [Suspect]
     Indication: DEMENTIA
     Route: 048
     Dates: start: 20091102, end: 20091127
  3. EXELON [Interacting]
     Route: 048
     Dates: end: 20091129
  4. STALEVO 100 [Concomitant]
     Route: 048
     Dates: end: 20091127
  5. PAROXETINE [Interacting]
     Dosage: DAILY
     Route: 048
     Dates: end: 20091125

REACTIONS (2)
  - DRUG INTERACTION [None]
  - CONFUSIONAL STATE [None]
